FAERS Safety Report 16361610 (Version 2)
Quarter: 2019Q2

REPORT INFORMATION
  Report Type: Spontaneous
  Country: US (occurrence: US)
  Receive Date: 20190528
  Receipt Date: 20190628
  Transmission Date: 20190711
  Serious: No
  Sender: FDA-Public Use
  Company Number: US-PFIZER INC-2019166474

PATIENT
  Age: 84 Year
  Sex: Female

DRUGS (2)
  1. XELJANZ [Suspect]
     Active Substance: TOFACITINIB CITRATE
     Indication: PSORIASIS
     Dosage: 5 MG, UNK
  2. XELJANZ [Suspect]
     Active Substance: TOFACITINIB CITRATE
     Indication: SKIN MASS

REACTIONS (3)
  - Drug effective for unapproved indication [Unknown]
  - Off label use [Unknown]
  - Sinus disorder [Unknown]
